FAERS Safety Report 17185015 (Version 1)
Quarter: 2019Q4

REPORT INFORMATION
  Report Type: Spontaneous
  Country: US (occurrence: US)
  Receive Date: 20191127
  Receipt Date: 20191127
  Transmission Date: 20200122
  Serious: Yes (Other)
  Sender: FDA-Public Use
  Company Number: None

PATIENT
  Age: 81 Year
  Sex: Female

DRUGS (14)
  1. ADVAIR DISKUS [Concomitant]
     Active Substance: FLUTICASONE PROPIONATE\SALMETEROL XINAFOATE
  2. LACTULOSE. [Concomitant]
     Active Substance: LACTULOSE
  3. OMEPRAZOLE. [Concomitant]
     Active Substance: OMEPRAZOLE
  4. INHL SOLN [Concomitant]
  5. ALBUTEROL INHL NEB SOLN [Concomitant]
     Active Substance: ALBUTEROL
  6. SPIRIVA RESPIMATE [Concomitant]
  7. ALBUTEROL HFA [Concomitant]
     Active Substance: ALBUTEROL SULFATE
  8. FERROUS SULFATE. [Concomitant]
     Active Substance: FERROUS SULFATE
  9. IPRATROPIUM [Concomitant]
     Active Substance: IPRATROPIUM
  10. OPSUMIT [Suspect]
     Active Substance: MACITENTAN
     Indication: PULMONARY ARTERIAL HYPERTENSION
     Route: 048
     Dates: start: 201711
  11. SILDENAFIL. [Concomitant]
     Active Substance: SILDENAFIL
  12. LASIX [Concomitant]
     Active Substance: FUROSEMIDE
  13. ATORVASTATIN [Concomitant]
     Active Substance: ATORVASTATIN
  14. SUCRALFATE. [Concomitant]
     Active Substance: SUCRALFATE

REACTIONS (1)
  - Bursitis [None]

NARRATIVE: CASE EVENT DATE: 20191110
